FAERS Safety Report 5521121-6 (Version None)
Quarter: 2007Q4

REPORT INFORMATION
  Report Type: 
  Country: None (occurrence: None)
  Receive Date: 20071119
  Receipt Date: 20071112
  Transmission Date: 20080405
  Serious: Yes (Hospitalization)
  Sender: FDA-Public Use
  Company Number: DE-WYE-G00599507

PATIENT
  Sex: Female
  Weight: 55 kg

DRUGS (9)
  1. TREVILOR [Suspect]
     Indication: BIPOLAR I DISORDER
     Route: 048
     Dates: start: 20070522, end: 20070604
  2. TREVILOR [Suspect]
     Route: 048
     Dates: start: 20070605, end: 20070708
  3. QUILONIUM-R [Concomitant]
     Route: 048
     Dates: start: 20070227, end: 20070613
  4. QUILONIUM-R [Concomitant]
     Route: 048
     Dates: start: 20070731, end: 20070803
  5. QUILONIUM-R [Concomitant]
     Route: 048
     Dates: start: 20070804
  6. ERGENYL [Concomitant]
     Route: 048
     Dates: start: 20070522, end: 20070706
  7. ERGENYL [Concomitant]
     Route: 048
     Dates: start: 20070718
  8. ELMENDOS [Suspect]
     Route: 048
     Dates: start: 20070530, end: 20070612
  9. ELMENDOS [Suspect]
     Route: 048
     Dates: start: 20070613, end: 20070624

REACTIONS (3)
  - DRUG ERUPTION [None]
  - RASH MACULO-PAPULAR [None]
  - URTICARIA [None]
